FAERS Safety Report 4452206-3 (Version None)
Quarter: 2004Q3

REPORT INFORMATION
  Report Type: 
  Country: None (occurrence: None)
  Receive Date: 20040916
  Receipt Date: 20040916
  Transmission Date: 20050211
  Serious: No
  Sender: FDA-Public Use
  Company Number: None

PATIENT
  Sex: Female
  Weight: 42.6381 kg

DRUGS (6)
  1. CPT11  20MG/ML  PFIZER [Suspect]
     Indication: LUNG NEOPLASM MALIGNANT
     Dosage: 50MG/M2=67.5  D2,D9 Q 28  INTRAVENOUS
     Route: 042
     Dates: start: 20031105, end: 20040915
  2. EPIRUBICIN [Suspect]
     Indication: LUNG NEOPLASM MALIGNANT
     Dosage: 25MG/M2=33.7  D1,D8 Q 28  INTRAVENOUS
     Route: 042
     Dates: start: 20031104, end: 20040914
  3. ZOFRAN [Concomitant]
  4. DECADRONE [Concomitant]
  5. ATROPINE [Concomitant]
  6. ARANESP [Concomitant]

REACTIONS (2)
  - HYPERSENSITIVITY [None]
  - LOCALISED OEDEMA [None]
